FAERS Safety Report 9718105 (Version 1)
Quarter: 2013Q4

REPORT INFORMATION
  Report Type: Spontaneous
  Country: US (occurrence: US)
  Receive Date: 20131125
  Receipt Date: 20131125
  Transmission Date: 20140711
  Serious: No
  Sender: FDA-Public Use
  Company Number: US-VIVUS-2013V1000486

PATIENT
  Sex: Female
  Weight: 115.77 kg

DRUGS (1)
  1. QSYMIA 7.5MG/46MG [Suspect]
     Indication: OBESITY
     Route: 048
     Dates: start: 20130523

REACTIONS (4)
  - Irritability [Unknown]
  - Disturbance in attention [Unknown]
  - Mood altered [Unknown]
  - Thirst [Unknown]
